FAERS Safety Report 7121514-X (Version None)
Quarter: 2010Q4

REPORT INFORMATION
  Report Type: 
  Country: None (occurrence: None)
  Receive Date: 20101119
  Receipt Date: 20101119
  Transmission Date: 20110411
  Serious: Yes (Hospitalization)
  Sender: FDA-Public Use
  Company Number: None

PATIENT
  Age: 62 Year
  Sex: Female
  Weight: 69.5 kg

DRUGS (11)
  1. ANASTROZOLE (ARIMIDEX) [Suspect]
     Indication: BREAST CANCER
     Dosage: 1 MG ONCE A DAY ORAL (047)
     Route: 048
     Dates: start: 20100804, end: 20101015
  2. GLUCOPHAGE [Concomitant]
  3. LISINOPRIL [Concomitant]
  4. AMLODIPINE [Concomitant]
  5. PERCOCET [Concomitant]
  6. ZOMETA [Concomitant]
  7. IBUPROFEN [Concomitant]
  8. POTASSIUM CHLORIDE [Concomitant]
  9. LYRICA [Concomitant]
  10. FLONASE [Concomitant]
  11. LASIX [Concomitant]

REACTIONS (7)
  - ABDOMINAL PAIN LOWER [None]
  - ABDOMINAL PAIN UPPER [None]
  - CHILLS [None]
  - DIARRHOEA [None]
  - ERUCTATION [None]
  - NAUSEA [None]
  - OEDEMA PERIPHERAL [None]
